FAERS Safety Report 4428026-2 (Version None)
Quarter: 2004Q3

REPORT INFORMATION
  Report Type: 
  Country: None (occurrence: None)
  Receive Date: 20040813
  Receipt Date: 20040731
  Transmission Date: 20050211
  Serious: Yes (Other)
  Sender: FDA-Public Use
  Company Number: 2004045646

PATIENT
  Age: 70 Year
  Sex: Female
  Weight: 63.5036 kg

DRUGS (3)
  1. LIPITOR [Suspect]
     Indication: BLOOD CHOLESTEROL INCREASED
     Dosage: 40 MG (1 IN 1 D), ORAL
     Route: 048
     Dates: end: 20040301
  2. CONJUGATED ESTROGENS [Concomitant]
  3. FUROSEMIDE [Concomitant]

REACTIONS (9)
  - ASTHENIA [None]
  - BLOOD ALKALINE PHOSPHATASE INCREASED [None]
  - BLOOD CHOLESTEROL INCREASED [None]
  - BONE DISORDER [None]
  - CHOLELITHIASIS [None]
  - DRUG EFFECT DECREASED [None]
  - FORMICATION [None]
  - GROIN PAIN [None]
  - VEIN PAIN [None]
